FAERS Safety Report 6579612-5 (Version None)
Quarter: 2010Q1

REPORT INFORMATION
  Report Type: 
  Country: None (occurrence: None)
  Receive Date: 20100209
  Receipt Date: 20100209
  Transmission Date: 20100710
  Serious: Yes (Death)
  Sender: FDA-Public Use
  Company Number: None

PATIENT
  Age: 89 Year
  Sex: Male
  Weight: 74.8435 kg

DRUGS (2)
  1. RISPERDONE 0.5 MG TEVAU [Suspect]
     Indication: AGITATION
     Dosage: 1 PILL 2 TIMES PER DAY PO
     Route: 048
     Dates: start: 20090606, end: 20090801
  2. SEROQUEL [Suspect]
     Indication: AGITATION
     Dosage: 1 PILL 1 TIME PER DAY PO
     Route: 048
     Dates: start: 20091209, end: 20091211

REACTIONS (1)
  - CEREBROVASCULAR ACCIDENT [None]
